FAERS Safety Report 8195424-3 (Version None)
Quarter: 2012Q1

REPORT INFORMATION
  Report Type: 
  Country: None (occurrence: None)
  Receive Date: 20120308
  Receipt Date: 20120228
  Transmission Date: 20120608
  Serious: Yes (Hospitalization)
  Sender: FDA-Public Use
  Company Number: PHHY2012DE012377

PATIENT
  Sex: Female

DRUGS (2)
  1. ANTIEPILEPTICS [Concomitant]
     Indication: EPILEPSY
     Route: 048
  2. TEGRETOL-XR [Suspect]
     Indication: EPILEPSY
     Route: 048

REACTIONS (2)
  - ABDOMINAL DISCOMFORT [None]
  - HELICOBACTER INFECTION [None]
